FAERS Safety Report 10345790 (Version 2)
Quarter: 2014Q3

REPORT INFORMATION
  Report Type: Spontaneous
  Country: US (occurrence: US)
  Receive Date: 20140728
  Receipt Date: 20140728
  Transmission Date: 20150326
  Serious: No
  Sender: FDA-Public Use
  Company Number: US-009507513-1407USA001022

PATIENT
  Sex: Female

DRUGS (1)
  1. DULERA [Suspect]
     Active Substance: FORMOTEROL FUMARATE DIHYDRATE\MOMETASONE FUROATE
     Indication: COUGH
     Dosage: TWO PUFFS TWICE DAILY/2 PUFFS EACH 12 HOURS
     Route: 055
     Dates: start: 20130320

REACTIONS (3)
  - Drug administration error [Unknown]
  - No adverse event [Unknown]
  - Product quality issue [Unknown]
